FAERS Safety Report 6912508-5 (Version None)
Quarter: 2010Q3

REPORT INFORMATION
  Report Type: 
  Country: None (occurrence: None)
  Receive Date: 20100806
  Receipt Date: 20080714
  Transmission Date: 20110219
  Serious: Yes (Other)
  Sender: FDA-Public Use
  Company Number: US-PFIZER INC-2008044818

PATIENT
  Sex: Male

DRUGS (11)
  1. DILANTIN [Suspect]
     Indication: CONVULSION
     Dates: start: 19780401
  2. DILANTIN [Suspect]
     Indication: CONVULSION
     Dates: start: 19780401
  3. PHENYTOIN [Suspect]
     Indication: CONVULSION
  4. ANTACID TAB [Concomitant]
  5. KALETRA [Concomitant]
  6. TRUVADA [Concomitant]
  7. VIDEX [Concomitant]
  8. ACYCLOVIR [Concomitant]
  9. PREVACID [Concomitant]
  10. LIPITOR [Concomitant]
  11. OXANDRIN [Concomitant]

REACTIONS (13)
  - ACTIVITIES OF DAILY LIVING IMPAIRED [None]
  - ADVERSE REACTION [None]
  - ANTICONVULSANT DRUG LEVEL DECREASED [None]
  - ASTHENIA [None]
  - AURA [None]
  - BLOOD GLUCOSE INCREASED [None]
  - CACHEXIA [None]
  - DIZZINESS [None]
  - DRUG INTOLERANCE [None]
  - IMPAIRED DRIVING ABILITY [None]
  - RECTAL CANCER [None]
  - SOMNOLENCE [None]
  - TREMOR [None]
